FAERS Safety Report 8508221-3 (Version None)
Quarter: 2012Q2

REPORT INFORMATION
  Report Type: 
  Country: None (occurrence: None)
  Receive Date: 20120405
  Receipt Date: 20090331
  Transmission Date: 20120825
  Serious: Yes (Other)
  Sender: FDA-Public Use
  Company Number: PHEH2009US03214

PATIENT
  Sex: Female

DRUGS (6)
  1. OXYBUTYNIN CHLORIDE (OXYBUTYNIN HYDROCHLORIDE) [Concomitant]
  2. VITAMINS (NO INGREDIENTS/SUBSTANCES) [Concomitant]
  3. SIMVASTATIN [Concomitant]
  4. NEXIUM [Concomitant]
  5. METOPROLOL SUCCINATE [Concomitant]
  6. RECLAST [Suspect]
     Dates: start: 20090330

REACTIONS (8)
  - BLOOD PRESSURE INCREASED [None]
  - HEADACHE [None]
  - NECK PAIN [None]
  - PAIN IN JAW [None]
  - PARAESTHESIA [None]
  - MYALGIA [None]
  - CHEST PAIN [None]
  - INFLUENZA [None]
